FAERS Safety Report 9916450 (Version 2)
Quarter: 2014Q1

REPORT INFORMATION
  Report Type: Spontaneous
  Country: IT (occurrence: None)
  Receive Date: 20140219
  Receipt Date: 20140313
  Transmission Date: 20141002
  Serious: Yes (Other)
  Sender: FDA-Public Use
  Company Number: 2180826

PATIENT
  Age: 64 Year
  Sex: Female

DRUGS (3)
  1. DOCETAXEL [Suspect]
     Indication: BREAST CANCER
     Dosage: 170 MG MILLIGRAM(S), CYCLICAL, INTRAVENOUS (NOT OTHERWISE SPECIFIED)?
     Route: 042
     Dates: start: 20090116, end: 20090709
  2. TRASTUZUMAB [Concomitant]
  3. HEPARIN SODIUM [Concomitant]

REACTIONS (4)
  - Carpal tunnel syndrome [None]
  - Brachial plexopathy [None]
  - Nervous system disorder [None]
  - Atrophy [None]
